FAERS Safety Report 17777814 (Version 1)
Quarter: 2020Q2

REPORT INFORMATION
  Report Type: Report from Study
  Country: US (occurrence: US)
  Receive Date: 20200513
  Receipt Date: 20200513
  Transmission Date: 20200714
  Serious: Yes (Hospitalization, Other)
  Sender: FDA-Public Use
  Company Number: US-BAYER-2020-083297

PATIENT
  Age: 66 Year
  Sex: Female

DRUGS (3)
  1. EPTIFIBATIDE. [Concomitant]
     Active Substance: EPTIFIBATIDE
  2. TICAGRELOR. [Suspect]
     Active Substance: TICAGRELOR
  3. ASPIRIN. [Suspect]
     Active Substance: ASPIRIN

REACTIONS (4)
  - Labelled drug-drug interaction medication error [None]
  - Subarachnoid haemorrhage [None]
  - Aphasia [None]
  - Haematoma [None]
